FAERS Safety Report 6554302-3 (Version None)
Quarter: 2010Q1

REPORT INFORMATION
  Report Type: 
  Country: None (occurrence: None)
  Receive Date: 20100127
  Receipt Date: 20100118
  Transmission Date: 20100710
  Serious: Yes (Other)
  Sender: FDA-Public Use
  Company Number: US-JNJFOC-20100107715

PATIENT
  Sex: Female

DRUGS (3)
  1. DURAGESIC-100 [Suspect]
     Indication: PAIN IN EXTREMITY
     Route: 062
  2. DURAGESIC-100 [Suspect]
     Route: 062
  3. ALBUTEROL [Concomitant]
     Indication: ASTHMA
     Route: 055

REACTIONS (6)
  - CONSTIPATION [None]
  - CYSTITIS [None]
  - DRUG INEFFECTIVE [None]
  - KIDNEY INFECTION [None]
  - PRODUCT ADHESION ISSUE [None]
  - WRONG TECHNIQUE IN DRUG USAGE PROCESS [None]
